FAERS Safety Report 5310123-0 (Version None)
Quarter: 2007Q2

REPORT INFORMATION
  Report Type: 
  Country: None (occurrence: None)
  Receive Date: 20070427
  Receipt Date: 20070425
  Transmission Date: 20071010
  Serious: Yes (Hospitalization, Other)
  Sender: FDA-Public Use
  Company Number: FR-BRISTOL-MYERS SQUIBB COMPANY-13761283

PATIENT
  Age: 65 Year
  Sex: Female

DRUGS (12)
  1. COUMADIN [Suspect]
     Route: 048
     Dates: end: 20070404
  2. PERISTALTINE [Concomitant]
  3. FORLAX [Concomitant]
  4. CONTRAMAL [Concomitant]
  5. TRACLEER [Concomitant]
  6. PARACETAMOL [Concomitant]
  7. DIFFU-K [Concomitant]
  8. INIPOMP [Concomitant]
  9. LOVENOX [Concomitant]
  10. VENOFER [Concomitant]
  11. LASIX [Concomitant]
  12. TARDYFERON [Concomitant]

REACTIONS (4)
  - DRUG TOXICITY [None]
  - GASTRIC ULCER HAEMORRHAGE [None]
  - GENERAL PHYSICAL HEALTH DETERIORATION [None]
  - INTERNATIONAL NORMALISED RATIO INCREASED [None]
